FAERS Safety Report 4726245-9 (Version None)
Quarter: 2005Q3

REPORT INFORMATION
  Report Type: 
  Country: None (occurrence: None)
  Receive Date: 20050725
  Receipt Date: 20050725
  Transmission Date: 20060218
  Serious: Yes (Hospitalization, Other)
  Sender: FDA-Public Use
  Company Number: None

PATIENT
  Sex: Female
  Weight: 100 kg

DRUGS (7)
  1. DOXORUBICIN [Suspect]
     Indication: BREAST CANCER
     Dosage: SEE IMAGE
     Route: 042
     Dates: start: 20050628
  2. CYCLOPHOSPHAMIDE [Suspect]
     Dates: end: 20050628
  3. DOCETAXEL [Suspect]
  4. CEFTAZIDIME [Concomitant]
  5. GENTAMICIN [Concomitant]
  6. VANCOMYCIN [Concomitant]
  7. CLINDAMYCIN [Concomitant]

REACTIONS (5)
  - HYPOTENSION [None]
  - SEPSIS [None]
  - STAPHYLOCOCCAL INFECTION [None]
  - SUBCUTANEOUS ABSCESS [None]
  - WOUND INFECTION [None]
